FAERS Safety Report 16897401 (Version 1)
Quarter: 2019Q4

REPORT INFORMATION
  Report Type: Spontaneous
  Country: GB (occurrence: GB)
  Receive Date: 20191009
  Receipt Date: 20191009
  Transmission Date: 20200122
  Serious: Yes (Other)
  Sender: FDA-Public Use
  Company Number: GB-AUROBINDO-AUR-APL-2019-064718

PATIENT
  Sex: Female

DRUGS (1)
  1. IRBESARTAN 75MG TABLETS [Suspect]
     Active Substance: IRBESARTAN
     Indication: HYPERTENSION
     Dosage: 75 MILLIGRAM, ONCE A DAY
     Route: 048

REACTIONS (2)
  - Hypertension [Unknown]
  - Drug ineffective [Unknown]
